FAERS Safety Report 22373449 (Version 2)
Quarter: 2023Q2

REPORT INFORMATION
  Report Type: Report from Study
  Country: US (occurrence: US)
  Receive Date: 20230526
  Receipt Date: 20230601
  Transmission Date: 20230722
  Serious: No
  Sender: FDA-Public Use
  Company Number: US-BIOVITRUM-2023-US-011243

PATIENT
  Age: 50 Year
  Sex: Female

DRUGS (1)
  1. KINERET [Suspect]
     Active Substance: ANAKINRA
     Indication: Rheumatoid arthritis
     Dosage: 100MG/0.67ML?ONCE DAILY
     Route: 058
     Dates: start: 20221009

REACTIONS (2)
  - Drug ineffective [Unknown]
  - Product dose omission issue [Unknown]
